FAERS Safety Report 5839357-3 (Version None)
Quarter: 2008Q3

REPORT INFORMATION
  Report Type: 
  Country: None (occurrence: None)
  Receive Date: 20080806
  Receipt Date: 20080730
  Transmission Date: 20090109
  Serious: Yes (Life-Threatening)
  Sender: FDA-Public Use
  Company Number: 003146

PATIENT
  Age: 60 Year
  Sex: Male

DRUGS (6)
  1. BUSULFEX [Suspect]
     Indication: STEM CELL TRANSPLANT
     Dosage: 192 ML, INTRAVENOUS
     Route: 042
     Dates: start: 20070514, end: 20070515
  2. FLUDARABINE PHOSPHATE [Concomitant]
  3. VALPROATE SODIUM [Concomitant]
  4. FILGRASTIM (FILGRASTIM) [Concomitant]
  5. METHOTREXATE [Concomitant]
  6. TACROLIMUS [Concomitant]

REACTIONS (4)
  - ACUTE MYELOID LEUKAEMIA RECURRENT [None]
  - DIARRHOEA [None]
  - MALAISE [None]
  - STOMATITIS [None]
